FAERS Safety Report 4577000-4 (Version None)
Quarter: 2005Q1

REPORT INFORMATION
  Report Type: 
  Country: None (occurrence: None)
  Receive Date: 20050208
  Receipt Date: 20050124
  Transmission Date: 20050727
  Serious: Yes (Hospitalization)
  Sender: FDA-Public Use
  Company Number: 2005-BP-01083BP

PATIENT
  Age: 94 Year
  Sex: Female

DRUGS (1)
  1. FLOMAX [Suspect]
     Dosage: 0.4 MG (0.4 MG), PO
     Route: 048

REACTIONS (2)
  - CEREBROVASCULAR ACCIDENT [None]
  - MEDICATION ERROR [None]
